FAERS Safety Report 5648775-8 (Version None)
Quarter: 2008Q1

REPORT INFORMATION
  Report Type: 
  Country: None (occurrence: None)
  Receive Date: 20080304
  Receipt Date: 20080222
  Transmission Date: 20080703
  Serious: Yes (Hospitalization)
  Sender: FDA-Public Use
  Company Number: AU-ROCHE-493097

PATIENT
  Age: 50 Year
  Sex: Male
  Weight: 95.1 kg

DRUGS (8)
  1. PEG-INTERFERON ALFA 2A (RO 25-8310) [Suspect]
     Route: 058
     Dates: start: 20070202
  2. RIBAVIRIN [Suspect]
     Dosage: GIVEN IN SPLIT DOSES (MORNING/EVENING).
     Route: 048
     Dates: start: 20070202
  3. MS CONTIN [Concomitant]
     Dosage: PRE STUDY STARTED ON UNKNOWN DATE
  4. MOGADON [Concomitant]
     Dates: start: 19970101
  5. METAMUCIL [Concomitant]
     Dosage: DOSE REPORTED AS ONE TABLESPOON.
     Dates: start: 20050101
  6. SENNA [Concomitant]
     Dates: start: 20050101
  7. VALIUM [Concomitant]
     Dosage: PRE STUDY STARTED ON UNKNOWN DATE
  8. MOVICOL [Concomitant]
     Dates: start: 20070323

REACTIONS (1)
  - CONSTIPATION [None]
